FAERS Safety Report 4364187-1 (Version None)
Quarter: 2004Q2

REPORT INFORMATION
  Report Type: 
  Country: None (occurrence: None)
  Receive Date: 20040521
  Receipt Date: 20040312
  Transmission Date: 20050107
  Serious: Yes (Hospitalization)
  Sender: FDA-Public Use
  Company Number: F01200400520

PATIENT
  Age: 48 Year
  Sex: Male

DRUGS (9)
  1. OXALIPLATIN - SOLUTION - 130 MG/M2 [Suspect]
     Indication: COLORECTAL CANCER
     Dosage: 130 MG/M2 Q3W INTRAVENOUS NOS
     Route: 042
     Dates: start: 20040309, end: 20040309
  2. CAPECITABINE - TABLET - 850 MG/M2 [Suspect]
     Dosage: 850 MG/M2 TWICE DAILY FROM D1 TO D15, Q3W ORAL
     Route: 048
     Dates: start: 20040309, end: 20040311
  3. AVASTIN [Suspect]
     Dosage: 7.5 MG/KG OVER 30-90 MINUTES IV INFUSION ON DAY ONE Q3W INTRAVENOUS NOS
     Route: 042
     Dates: start: 20040309, end: 20040309
  4. ONDANSETRON [Concomitant]
  5. EZETIMIBE [Concomitant]
  6. ESOMEPRAZOLE MAGNESIUM (OMEPRAZOLE MAGNESIUM) [Concomitant]
  7. POTASSIUM CITRATE [Concomitant]
  8. ESCITALOPRAM OXALATE (CITALOPRAM) [Concomitant]
  9. MULTI-VITAMINS [Concomitant]

REACTIONS (9)
  - BLOOD GLUCOSE INCREASED [None]
  - BLOOD POTASSIUM DECREASED [None]
  - BLOOD SODIUM DECREASED [None]
  - CHEST X-RAY ABNORMAL [None]
  - HAEMOGLOBIN DECREASED [None]
  - HEPATITIS GRANULOMATOUS [None]
  - LUNG NEOPLASM [None]
  - PLATELET COUNT DECREASED [None]
  - WHITE BLOOD CELL COUNT DECREASED [None]
